FAERS Safety Report 7898447-4 (Version None)
Quarter: 2011Q4

REPORT INFORMATION
  Report Type: 
  Country: None (occurrence: None)
  Receive Date: 20111107
  Receipt Date: 20111104
  Transmission Date: 20120403
  Serious: Yes (Hospitalization)
  Sender: FDA-Public Use
  Company Number: US-PFIZER INC-2010087444

PATIENT
  Sex: Male
  Weight: 68.027 kg

DRUGS (18)
  1. ANTIVERT [Suspect]
     Indication: BALANCE DISORDER
  2. LOPRESSOR [Concomitant]
     Indication: CORONARY ARTERY BYPASS
  3. PHENOBARBITAL [Concomitant]
     Indication: GRAND MAL CONVULSION
     Dosage: 30 MG, 3X/DAY
     Route: 048
  4. ANTIVERT [Suspect]
     Indication: VERTIGO
  5. LOPRESSOR [Concomitant]
     Indication: ANTICOAGULANT THERAPY
     Dosage: 50 MG, DAILY
     Route: 048
  6. QVAR 40 [Concomitant]
     Indication: EMPHYSEMA
     Dosage: 80 UG, 4X/DAY
  7. COMBIVENT [Concomitant]
     Indication: EMPHYSEMA
     Dosage: 14.7 G, 2X/DAY
  8. DILANTIN [Concomitant]
     Indication: GRAND MAL CONVULSION
     Dosage: 100 MG, 4X/DAY
     Route: 048
  9. ANTIVERT [Suspect]
  10. TAMSULOSIN HYDROCHLORIDE [Concomitant]
     Indication: POLLAKIURIA
     Dosage: 0.4 MG, 2X/DAY
     Route: 048
  11. ZANTAC [Concomitant]
     Indication: GASTRIC ULCER
  12. LIPITOR [Concomitant]
     Indication: ANTICOAGULANT THERAPY
     Dosage: 20 MG, 2X/DAY
     Route: 048
  13. IPRATROPIUM BROMIDE [Concomitant]
     Indication: EMPHYSEMA
     Dosage: 12.9 G, AS NEEDED
  14. ZANTAC [Concomitant]
     Indication: GASTROOESOPHAGEAL REFLUX DISEASE
     Dosage: 150 MG, 2X/DAY
     Route: 048
  15. LIBRIUM [Concomitant]
     Indication: ALCOHOLISM
     Dosage: 10 MG, 1X/DAY
     Route: 048
  16. VICODIN ES [Concomitant]
     Indication: CORONARY ARTERY BYPASS
     Dosage: 7.5/750MG, 3XDAY
  17. ANTIVERT [Suspect]
     Indication: DIZZINESS
     Dosage: 25 MG, 4X/DAY
     Route: 048
     Dates: start: 20060101, end: 20100701
  18. LIPITOR [Concomitant]
     Indication: CARDIAC DISORDER

REACTIONS (1)
  - CORONARY ARTERY BYPASS [None]
